FAERS Safety Report 25842882 (Version 3)
Quarter: 2025Q4

REPORT INFORMATION
  Report Type: Spontaneous
  Country: EU (occurrence: EU)
  Receive Date: 20250924
  Receipt Date: 20251209
  Transmission Date: 20260117
  Serious: Yes (Other)
  Sender: PFIZER
  Company Number: EU-AUROBINDO-AUR-APL-2025-046075

PATIENT
  Age: 36 Year
  Sex: Male

DRUGS (5)
  1. METHYLPREDNISOLONE [Suspect]
     Active Substance: METHYLPREDNISOLONE
     Indication: Multiple sclerosis relapse
     Dosage: UNK
     Dates: start: 2016
  2. MIANSERIN HYDROCHLORIDE [Suspect]
     Active Substance: MIANSERIN HYDROCHLORIDE
     Indication: Anxiety
     Dosage: 10 MG, 1X/DAY
     Route: 048
     Dates: start: 201603, end: 20250813
  3. MIANSERIN HYDROCHLORIDE [Suspect]
     Active Substance: MIANSERIN HYDROCHLORIDE
     Indication: Anxiety
     Dosage: 30 MG, 1X/DAY
     Route: 048
     Dates: start: 20250814, end: 20250826
  4. OXAZEPAM [Suspect]
     Active Substance: OXAZEPAM
     Indication: Anxiety
     Dosage: 10 MG
     Route: 048
     Dates: start: 201603
  5. TYSABRI [Concomitant]
     Active Substance: NATALIZUMAB
     Indication: Multiple sclerosis
     Dosage: UNK (1 PER MONTH)
     Route: 058
     Dates: start: 2016

REACTIONS (6)
  - Bradycardia [Recovered/Resolved]
  - Panic attack [Recovered/Resolved]
  - Suicidal ideation [Recovered/Resolved]
  - Palpitations [Recovered/Resolved]
  - Depression [Recovered/Resolved]
  - Negative thoughts [Recovered/Resolved]

NARRATIVE: CASE EVENT DATE: 20160301
